FAERS Safety Report 19263129 (Version 23)
Quarter: 2025Q4

REPORT INFORMATION
  Report Type: Spontaneous
  Country: GB (occurrence: GB)
  Receive Date: 20210517
  Receipt Date: 20251211
  Transmission Date: 20260118
  Serious: Yes (Other)
  Sender: ALKEM
  Company Number: None

PATIENT
  Age: 29 Year
  Sex: Male

DRUGS (46)
  1. IBUPROFEN [Suspect]
     Active Substance: IBUPROFEN
     Indication: Product used for unknown indication
     Dosage: UNK (ENDOTRACHEOPULMONARY INSTILLATION, POWDER AND SOLVENT FOR SOLUTION)
  2. IBUPROFEN [Suspect]
     Active Substance: IBUPROFEN
     Dosage: UNK (ORAL LIQUID)
     Route: 048
  3. PREGABALIN [Suspect]
     Active Substance: PREGABALIN
     Indication: Product used for unknown indication
     Dosage: UNK (CAPSULE, HARD)
     Route: 065
  4. PREGABALIN [Suspect]
     Active Substance: PREGABALIN
     Dosage: UNK
     Route: 048
  5. DICLOFENAC [Suspect]
     Active Substance: DICLOFENAC
     Indication: Product used for unknown indication
     Dosage: UNK
     Route: 065
     Dates: start: 2018
  6. TOPIRAMATE [Suspect]
     Active Substance: TOPIRAMATE
     Indication: Product used for unknown indication
     Dosage: UNK (ENDOTRACHEOPULMONARY INSTILLATION, POWDER AND SOLVENT FOR SOLUTION)
  7. TOPIRAMATE [Suspect]
     Active Substance: TOPIRAMATE
     Dosage: UNK
     Route: 048
  8. ACETAMINOPHEN [Suspect]
     Active Substance: ACETAMINOPHEN
     Indication: Product used for unknown indication
     Dosage: UNK (ORAL SUSPENSION)
     Route: 048
  9. ACETAMINOPHEN [Suspect]
     Active Substance: ACETAMINOPHEN
     Dosage: UNK
     Route: 065
  10. ACETAMINOPHEN [Suspect]
     Active Substance: ACETAMINOPHEN
     Dosage: ORAL LIQUID (ENDOTRACHEOPULMONARY INSTILLATION, POWDER AND SOLVENT FOR SOLUTION)
  11. TRAZODONE [Suspect]
     Active Substance: TRAZODONE HYDROCHLORIDE
     Indication: Product used for unknown indication
     Dosage: UNK (POWDER AND SOLVENT FOR SOLUTION FOR INJECTION)
     Route: 065
  12. TRAZODONE [Suspect]
     Active Substance: TRAZODONE HYDROCHLORIDE
     Dosage: UNK, QD (ENDOTRACHEOPULMONARY INSTILLATION, POWDER AND SOLVENT FOR SOLUTION)
  13. AMITRIPTYLINE HYDROCHLORIDE [Suspect]
     Active Substance: AMITRIPTYLINE HYDROCHLORIDE
     Indication: Product used for unknown indication
     Dosage: UNK, QD, (ENDOTRACHEOPULMONARY INSTILLATION, POWDER AND SOLVENT FOR SOLUTION)
     Dates: start: 2017
  14. AMITRIPTYLINE HYDROCHLORIDE [Suspect]
     Active Substance: AMITRIPTYLINE HYDROCHLORIDE
     Dosage: UNK
     Route: 030
     Dates: start: 2017
  15. AMITRIPTYLINE HYDROCHLORIDE [Suspect]
     Active Substance: AMITRIPTYLINE HYDROCHLORIDE
     Dosage: UNK
     Route: 065
     Dates: start: 2017
  16. AMITRIPTYLINE HYDROCHLORIDE [Suspect]
     Active Substance: AMITRIPTYLINE HYDROCHLORIDE
     Dosage: UNK, QD
     Route: 030
     Dates: start: 2018
  17. BOTOX [Suspect]
     Active Substance: ONABOTULINUMTOXINA
     Indication: Product used for unknown indication
     Dosage: 1 MILLIGRAM, QD (SINGLE, CYCLICAL) POWDER FOR SOLUTION FOR INJECTION
     Route: 030
  18. BOTOX [Suspect]
     Active Substance: ONABOTULINUMTOXINA
     Dosage: 1 MILLIGRAM (SINGLE, CYCLICAL) (1 DOSAGE FORM) POWDER FOR SOLUTION FOR INJECTION
     Route: 030
     Dates: start: 2017
  19. BOTOX [Suspect]
     Active Substance: ONABOTULINUMTOXINA
     Dosage: 1 MILLIGRAM (SINGLE, CYCLICAL) POWDER FOR SOLUTION FOR INJECTION
     Route: 030
     Dates: start: 2018
  20. BOTULINUM TOXIN TYPE A [Suspect]
     Active Substance: BOTULINUM TOXIN TYPE A
     Indication: Product used for unknown indication
     Dosage: 1 MILLIGRAM (NASAL SPRAY, SUSPENSION)
     Route: 045
     Dates: start: 2017
  21. BOTULINUM TOXIN TYPE A [Suspect]
     Active Substance: BOTULINUM TOXIN TYPE A
     Dosage: 1 DOSAGE FORM, PRN SUSPENSION
     Route: 030
     Dates: start: 2017
  22. BOTULINUM TOXIN TYPE A [Suspect]
     Active Substance: BOTULINUM TOXIN TYPE A
     Dosage: 1 MILLIGRAM, QD (ONE DAY) (SINGLE CYCLE) SUSPENSION
     Route: 030
     Dates: start: 2018
  23. CYANOCOBALAMIN [Suspect]
     Active Substance: CYANOCOBALAMIN
     Indication: Product used for unknown indication
     Dosage: UNK
     Route: 065
  24. DOTHIEPIN HYDROCHLORIDE [Suspect]
     Active Substance: DOTHIEPIN HYDROCHLORIDE
     Indication: Product used for unknown indication
     Dosage: POWDER FOR CONCENTRATE FOR SOLUTION FOR HAEMODIALYSIS
     Route: 048
  25. DOTHIEPIN HYDROCHLORIDE [Suspect]
     Active Substance: DOTHIEPIN HYDROCHLORIDE
     Dosage: POWDER FOR CONCENTRATE FOR SOLUTION FOR HAEMODIALYSIS (ENDOTRACHEOPULMONARY INSTILLATION, POWDER AND
  26. TRAZODONE HYDROCHLORIDE [Suspect]
     Active Substance: TRAZODONE HYDROCHLORIDE
     Indication: Product used for unknown indication
     Dosage: UNK (POWDER AND SOLVENT FOR SOLUTION FOR INJECTION)
     Route: 065
  27. TRAZODONE HYDROCHLORIDE [Suspect]
     Active Substance: TRAZODONE HYDROCHLORIDE
     Dosage: UNK, QD
     Route: 048
  28. DICLOFENAC SODIUM [Suspect]
     Active Substance: DICLOFENAC SODIUM
     Indication: Product used for unknown indication
     Dosage: UNK
     Route: 030
  29. CYANOCOBALAMIN\PYRIDOXINE HYDROCHLORIDE\THIAMINE [Suspect]
     Active Substance: CYANOCOBALAMIN\PYRIDOXINE HYDROCHLORIDE\THIAMINE
     Indication: Product used for unknown indication
     Dosage: UNK
     Route: 065
  30. PYRIDOXINE HYDROCHLORIDE\THIAMINE HYDROCHLORIDE [Suspect]
     Active Substance: PYRIDOXINE HYDROCHLORIDE\THIAMINE HYDROCHLORIDE
     Indication: Product used for unknown indication
     Dosage: UNK
     Route: 065
  31. VITAMINS [Suspect]
     Active Substance: VITAMINS
     Indication: Product used for unknown indication
     Dosage: UNK
     Route: 065
  32. IBUPROFEN [Suspect]
     Active Substance: IBUPROFEN
     Indication: Product used for unknown indication
     Dosage: UNK (CONCENTRATE FOR HAEMODIALYSIS SOLUTION)
     Route: 065
  33. IBUPROFEN [Suspect]
     Active Substance: IBUPROFEN
     Dosage: UNK, (ENDOTRACHEOPULMONARY INSTILLATION)
  34. PROTHIADEN [Suspect]
     Active Substance: DOTHIEPIN HYDROCHLORIDE
     Indication: Product used for unknown indication
     Dosage: UNK (ENDOTRACHEOPULMONARY INSTILLATION, SOLUTION
  35. PROTHIADEN [Suspect]
     Active Substance: DOTHIEPIN HYDROCHLORIDE
     Dosage: UNK (POWDER AND SOLVENT FOR SOLUTION) (ORAL LIQUID)
     Route: 048
  36. PYRIDOXINE HYDROCHLORIDE [Suspect]
     Active Substance: PYRIDOXINE HYDROCHLORIDE
     Indication: Product used for unknown indication
     Dosage: INJECTION
     Route: 065
  37. SERTRALINE [Suspect]
     Active Substance: SERTRALINE HYDROCHLORIDE
     Indication: Product used for unknown indication
     Dosage: CAPSULE, HARD
     Route: 065
  38. THIAMINE HYDROCHLORIDE [Suspect]
     Active Substance: THIAMINE HYDROCHLORIDE
     Indication: Product used for unknown indication
     Dosage: UNK
     Route: 065
  39. TOPAMAX [Suspect]
     Active Substance: TOPIRAMATE
     Indication: Product used for unknown indication
     Dosage: UNK
     Route: 065
  40. TOPAMAX [Suspect]
     Active Substance: TOPIRAMATE
     Dosage: UNK
     Route: 048
  41. VALPROIC ACID [Suspect]
     Active Substance: VALPROIC ACID
     Indication: Product used for unknown indication
     Dosage: UNK
     Route: 030
  42. VALPROIC ACID [Suspect]
     Active Substance: VALPROIC ACID
     Dosage: UNK (VALPROATE MAGNESIUM)
     Route: 065
  43. VALPROIC ACID [Suspect]
     Active Substance: VALPROIC ACID
     Dosage: UNK (VALPROATE SODIUM)
     Route: 065
  44. VALPROIC ACID [Suspect]
     Active Substance: VALPROIC ACID
     Dosage: UNK, OD (ONCE A DAY) (ENDOTRACHEOPULMONARY INSTILLATION, POWDER AND SOLVENT FOR SOLUTION)
  45. VITAMIN B COMPLEX [Suspect]
     Active Substance: CYANOCOBALAMIN\DEXPANTHENOL\NIACINAMIDE\PYRIDOXINE HYDROCHLORIDE\RIBOFLAVIN 5^-PHOSPHATE SODIUM\THIA
     Indication: Product used for unknown indication
     Dosage: UNK
     Route: 065
  46. VITAMIN B [Suspect]
     Active Substance: VITAMIN B
     Indication: Product used for unknown indication
     Dosage: UNK
     Route: 065

REACTIONS (6)
  - Migraine [Unknown]
  - Head discomfort [Unknown]
  - Back pain [Unknown]
  - Neck pain [Unknown]
  - Pain [Unknown]
  - Headache [Unknown]
